FAERS Safety Report 8908909 (Version 1)
Quarter: 2012Q4

REPORT INFORMATION
  Report Type: 
  Country: US (occurrence: US)
  Receive Date: 20121113
  Receipt Date: 20121113
  Transmission Date: 20130627
  Serious: No
  Sender: FDA-Public Use
  Company Number: US-AMGEN-USASP2012011711

PATIENT
  Age: 70 Year
  Sex: Male
  Weight: 73.47 kg

DRUGS (11)
  1. ENBREL [Suspect]
     Indication: PRODUCT USED FOR UNKNOWN INDICATION
     Dosage: 50 mg, qwk
  2. ARANESP [Concomitant]
     Dosage: 100 mug, UNK
  3. ZYPREXA [Concomitant]
     Dosage: 2.5 mg, UNK
  4. RAMIPRIL [Concomitant]
     Dosage: 2.5 mg, UNK
  5. CRESTOR [Concomitant]
     Dosage: 5 mg, UNK
  6. METOPROLOL [Concomitant]
     Dosage: 25 mg, UNK
  7. NUMOISYN [Concomitant]
     Dosage: UNK
  8. PEPCID AC [Concomitant]
     Dosage: 10 mg, UNK
  9. PRESERVISION AREDS [Concomitant]
  10. SAW PALMETTO                       /00833501/ [Concomitant]
  11. ETODOLAC [Concomitant]
     Dosage: 200 mg, UNK

REACTIONS (1)
  - Anaemia [Unknown]
